FAERS Safety Report 7061909-6 (Version None)
Quarter: 2010Q4

REPORT INFORMATION
  Report Type: 
  Country: None (occurrence: None)
  Receive Date: 20101026
  Receipt Date: 20101020
  Transmission Date: 20110411
  Serious: Yes (Other)
  Sender: FDA-Public Use
  Company Number: JP-PFIZER INC-2010125089

PATIENT

DRUGS (2)
  1. UNASYN [Suspect]
     Route: 041
  2. PRODIF [Suspect]

REACTIONS (1)
  - STEVENS-JOHNSON SYNDROME [None]
